FAERS Safety Report 5928635-5 (Version None)
Quarter: 2008Q4

REPORT INFORMATION
  Report Type: 
  Country: None (occurrence: None)
  Receive Date: 20081023
  Receipt Date: 20081020
  Transmission Date: 20090506
  Serious: Yes (Hospitalization, Other)
  Sender: FDA-Public Use
  Company Number: US-B.I. PHARMACEUTICALS,INC./RIDGEFIELD-2008-BP-16059BP

PATIENT
  Sex: Female

DRUGS (8)
  1. SPIRIVA [Suspect]
     Indication: CHRONIC OBSTRUCTIVE PULMONARY DISEASE
     Dosage: 18MCG
     Route: 055
     Dates: start: 20040101
  2. SPIRIVA [Suspect]
     Indication: EMPHYSEMA
  3. PERCOCET [Concomitant]
  4. DURAGESIC-100 [Concomitant]
     Dosage: 100MCG
  5. CLARITIN [Concomitant]
  6. SINGULAIR [Concomitant]
  7. ALBUTEROL [Concomitant]
  8. COMBIVENT [Concomitant]
     Dates: end: 20080801

REACTIONS (6)
  - ASTHMA [None]
  - EAR DISORDER [None]
  - LUNG NEOPLASM [None]
  - OSTEOARTHRITIS [None]
  - PELVIC FRACTURE [None]
  - SINUS DISORDER [None]
